FAERS Safety Report 19263867 (Version 1)
Quarter: 2021Q2

REPORT INFORMATION
  Report Type: Spontaneous
  Country: US (occurrence: US)
  Receive Date: 20210514
  Receipt Date: 20210514
  Transmission Date: 20210717
  Serious: Yes (Other)
  Sender: FDA-Public Use
  Company Number: None

PATIENT
  Age: 38 Year
  Sex: Female
  Weight: 79.2 kg

DRUGS (6)
  1. BACTRIM [Suspect]
     Active Substance: SULFAMETHOXAZOLE\TRIMETHOPRIM
     Indication: STAPHYLOCOCCAL INFECTION
     Route: 048
     Dates: start: 20210409, end: 20210416
  2. TURMERIC [Concomitant]
     Active Substance: HERBALS\TURMERIC
  3. PROBIOTICS [Concomitant]
     Active Substance: PROBIOTICS NOS
  4. ALLEGRA OTC PRN [Concomitant]
  5. VITAMINS  C, D3, B12 [Concomitant]
  6. ALBUTEROL INHALER PRN [Concomitant]

REACTIONS (1)
  - Tachycardia [None]

NARRATIVE: CASE EVENT DATE: 20210412
